FAERS Safety Report 24714854 (Version 1)
Quarter: 2024Q4

REPORT INFORMATION
  Report Type: Spontaneous
  Country: RU (occurrence: RU)
  Receive Date: 20241210
  Receipt Date: 20241210
  Transmission Date: 20250115
  Serious: Yes (Life-Threatening, Hospitalization)
  Sender: SANDOZ
  Company Number: RU-SANDOZ-SDZ2024RU101034

PATIENT
  Sex: Female
  Weight: 115 kg

DRUGS (11)
  1. METHOTREXATE [Suspect]
     Active Substance: METHOTREXATE
     Indication: Rheumatoid arthritis
     Dosage: 10 MG/WEEK
     Route: 030
     Dates: start: 20241014, end: 20241125
  2. AMLODIPINE [Concomitant]
     Active Substance: AMLODIPINE BESYLATE
     Indication: Product used for unknown indication
     Dosage: 1 TAB/DAY, IN THE EVENING, PER OS
     Route: 048
  3. ATORVASTATIN [Concomitant]
     Active Substance: ATORVASTATIN
     Indication: Hypercholesterolaemia
     Dosage: 1 TAB/DAY, PER OS
     Route: 048
  4. BISOPROLOL [Concomitant]
     Active Substance: BISOPROLOL
     Indication: Hypertension
     Dosage: 1 TAB/DAY IN THE MORNING
     Route: 048
  5. FUROSEMIDE [Concomitant]
     Active Substance: FUROSEMIDE
     Indication: Cardiac failure congestive
     Dosage: 1 TAB/DAY IN THE MORNING, PER OS
     Route: 048
  6. INSULIN NOS [Concomitant]
     Active Substance: INSULIN NOS
     Indication: Insulin-requiring type 2 diabetes mellitus
     Dosage: 46 UNITS AT 8:00 AND 22:00 AND 8 UNITS 3 TIMES PER DAY BEFORE MEALS, SUBCUTANEOUSLY
     Route: 058
  7. LOSARTAN [Concomitant]
     Active Substance: LOSARTAN
     Indication: Hypertension
     Dosage: 1 TAB/2 TIMES A DAY, PER OS
     Route: 048
  8. MOXONIDINE [Concomitant]
     Active Substance: MOXONIDINE
     Indication: Hypertension
     Dosage: 1 TAB/2 TIMES A DAY, PER OS
     Route: 048
  9. OLOKIZUMAB [Concomitant]
     Active Substance: OLOKIZUMAB
     Indication: Rheumatoid arthritis
     Dosage: 1 TIME IN 4 WEEKS
     Route: 058
     Dates: start: 20241012
  10. RIVAROXABAN [Concomitant]
     Active Substance: RIVAROXABAN
     Indication: Atrial fibrillation
     Dosage: 1 TAB/DAY PER OS
     Route: 048
  11. SPIRONOLACTONE [Concomitant]
     Active Substance: SPIRONOLACTONE
     Indication: Cardiac failure congestive
     Dosage: 1 TAB/DAY IN THE MORNING, PER OS
     Route: 048

REACTIONS (4)
  - Agranulocytosis [Unknown]
  - Pancytopenia [Unknown]
  - Stomatitis [Unknown]
  - Oropharyngeal pain [Unknown]

NARRATIVE: CASE EVENT DATE: 20241129
